FAERS Safety Report 23135787 (Version 4)
Quarter: 2024Q1

REPORT INFORMATION
  Report Type: Report from Study
  Country: US (occurrence: US)
  Receive Date: 20231101
  Receipt Date: 20240323
  Transmission Date: 20240410
  Serious: Yes (Other)
  Sender: FDA-Public Use
  Company Number: US-ABBVIE-5470379

PATIENT
  Sex: Female
  Weight: 49 kg

DRUGS (16)
  1. HUMIRA [Suspect]
     Active Substance: ADALIMUMAB
     Indication: Crohn^s disease
     Dosage: FORM STRENGTH: 40 MG
     Route: 058
     Dates: start: 202309
  2. HUMIRA [Suspect]
     Active Substance: ADALIMUMAB
     Dosage: FORM STRENGTH: 40 MG
     Route: 058
     Dates: start: 2016
  3. HUMIRA [Suspect]
     Active Substance: ADALIMUMAB
     Route: 058
  4. HUMIRA [Suspect]
     Active Substance: ADALIMUMAB
     Route: 058
     Dates: start: 20170830, end: 202309
  5. HUMIRA [Suspect]
     Active Substance: ADALIMUMAB
     Route: 058
     Dates: start: 20240319
  6. OMEPRAZOLE [Concomitant]
     Active Substance: OMEPRAZOLE
     Indication: Gastrooesophageal reflux disease
  7. SPIRONOLACTONE [Concomitant]
     Active Substance: SPIRONOLACTONE
     Indication: Liver disorder
  8. COVID-19 VACCINE NOS [Suspect]
     Active Substance: COVID-19 VACCINE NOS
     Indication: COVID-19 immunisation
     Route: 030
     Dates: start: 2021, end: 2021
  9. COVID-19 VACCINE NOS [Suspect]
     Active Substance: COVID-19 VACCINE NOS
     Indication: COVID-19 immunisation
     Route: 030
     Dates: start: 2022, end: 2022
  10. CIPROFLOXACIN HYDROCHLORIDE [Concomitant]
     Active Substance: CIPROFLOXACIN HYDROCHLORIDE
     Indication: Crohn^s disease
  11. ONDANSETRON [Concomitant]
     Active Substance: ONDANSETRON
     Indication: Nausea
     Dosage: TIME INTERVAL: AS NECESSARY
  12. SODIUM CHLORIDE [Concomitant]
     Active Substance: SODIUM CHLORIDE
     Indication: Nasal dryness
  13. CARVEDILOL [Concomitant]
     Active Substance: CARVEDILOL
     Indication: Blood pressure measurement
  14. IRON [Concomitant]
     Active Substance: IRON
     Indication: Product used for unknown indication
     Dosage: PILLS
  15. VITAMIN D [Concomitant]
     Active Substance: VITAMIN D NOS
     Indication: Product used for unknown indication
  16. BACITRACIN [Concomitant]
     Active Substance: BACITRACIN
     Indication: Ear dryness

REACTIONS (16)
  - Large intestine perforation [Recovering/Resolving]
  - Alopecia [Not Recovered/Not Resolved]
  - Weight decreased [Not Recovered/Not Resolved]
  - Feeding disorder [Not Recovered/Not Resolved]
  - Alopecia [Recovered/Resolved]
  - Unevaluable event [Recovering/Resolving]
  - Nasal congestion [Recovering/Resolving]
  - Diarrhoea [Recovered/Resolved]
  - Dry skin [Recovering/Resolving]
  - Sneezing [Recovering/Resolving]
  - Femur fracture [Recovering/Resolving]
  - Nasal dryness [Recovering/Resolving]
  - Nasal discomfort [Recovering/Resolving]
  - Dental implantation [Unknown]
  - Hypersensitivity [Recovering/Resolving]
  - Post procedural complication [Unknown]

NARRATIVE: CASE EVENT DATE: 20180101
